FAERS Safety Report 14769277 (Version 2)
Quarter: 2018Q3

REPORT INFORMATION
  Report Type: Not Available
  Country: US (occurrence: US)
  Receive Date: 20180417
  Receipt Date: 20180716
  Transmission Date: 20181010
  Serious: Yes (Hospitalization, Other)
  Sender: FDA-Public Use
  Company Number: US-NEUROCRINE BIOSCIENCES INC.-2018NBI00439

PATIENT
  Age: 63 Year
  Sex: Female

DRUGS (28)
  1. INGREZZA [Suspect]
     Active Substance: VALBENAZINE
     Route: 048
     Dates: start: 201801, end: 20180202
  2. TRAZODONE [Concomitant]
     Active Substance: TRAZODONE HYDROCHLORIDE
     Indication: INSOMNIA
     Dosage: NIGHTLY AS NEEDED
     Route: 048
  3. MYRBETRIQ [Concomitant]
     Active Substance: MIRABEGRON
     Route: 048
  4. MIRALAX [Concomitant]
     Active Substance: POLYETHYLENE GLYCOL 3350
     Route: 048
  5. DEPAKOTE [Concomitant]
     Active Substance: DIVALPROEX SODIUM
  6. ATIVAN [Concomitant]
     Active Substance: LORAZEPAM
     Indication: ANXIETY
     Dosage: AS NEEDED
     Route: 048
  7. SINEMET [Concomitant]
     Active Substance: CARBIDOPA\LEVODOPA
     Dosage: 25?100 MG ? 1/2 TAB TWICE DAILY FOR 1 WEEK
  8. SINEMET [Concomitant]
     Active Substance: CARBIDOPA\LEVODOPA
     Dosage: 25?100 MG ?  1 TABLET THREE TIMES DAILY
  9. CRANBERRY. [Concomitant]
     Active Substance: CRANBERRY
     Route: 048
  10. DEPAKOTE [Concomitant]
     Active Substance: DIVALPROEX SODIUM
     Dosage: AT NIGHT
  11. DIVALPROEX [Concomitant]
     Active Substance: DIVALPROEX SODIUM
  12. GABAPENTIN. [Concomitant]
     Active Substance: GABAPENTIN
     Dosage: 1 TABLET NIGHTLY FOR 1 WEEK, THEN 2 TABLETS NIGHTLY THEREAFTER
  13. TIGAN [Concomitant]
     Active Substance: TRIMETHOBENZAMIDE HYDROCHLORIDE
  14. ASPIRIN. [Concomitant]
     Active Substance: ASPIRIN
     Route: 048
  15. COLACE [Concomitant]
     Active Substance: DOCUSATE SODIUM
     Route: 048
  16. VITAMIN D [Concomitant]
     Active Substance: CHOLECALCIFEROL
     Route: 048
  17. OXYTROL [Concomitant]
     Active Substance: OXYBUTYNIN
     Indication: POLLAKIURIA
     Dosage: 3.9 MG/24HR : PLACE 3.9 MG ONTO THE SKIN
  18. MULTIVITAMIN [Concomitant]
     Active Substance: VITAMINS
     Route: 048
  19. CLONAZEPAM. [Concomitant]
     Active Substance: CLONAZEPAM
     Dosage: AT 5PM EVERY DAY
  20. FERREX [Concomitant]
     Active Substance: FERRIC POLYSACCHARIDE COMPLEX
     Route: 048
  21. SINEMET [Concomitant]
     Active Substance: CARBIDOPA\LEVODOPA
     Dosage: 25?100 MG ? 1/2 TAB THREE TIMES DAILY FOR 1 WEEK
  22. BENZTROPINE. [Concomitant]
     Active Substance: BENZTROPINE
  23. LATUDA [Concomitant]
     Active Substance: LURASIDONE HYDROCHLORIDE
     Route: 048
  24. TYLENOL [Concomitant]
     Active Substance: ACETAMINOPHEN
     Indication: PAIN
     Dosage: EVERY 6 HOURS AS NEEDED
     Route: 048
  25. INGREZZA [Suspect]
     Active Substance: VALBENAZINE
     Indication: TARDIVE DYSKINESIA
     Route: 048
     Dates: start: 20171216
  26. CELEXA [Concomitant]
     Active Substance: CITALOPRAM HYDROBROMIDE
     Dosage: AT BEDTIME
  27. PRIMIDONE. [Concomitant]
     Active Substance: PRIMIDONE
     Dosage: 0.5 TAB EVERY MORNING + 1 TAB IN THE EVENING FOR 1 WEEK, 1 TAB TWICE DAILY FOR 1 WEEK, 1 TAB IN THE
  28. ARICEPT [Concomitant]
     Active Substance: DONEPEZIL HYDROCHLORIDE

REACTIONS (8)
  - Cervix carcinoma [Recovering/Resolving]
  - Laceration [Recovering/Resolving]
  - Hand fracture [Recovered/Resolved]
  - Balance disorder [Recovering/Resolving]
  - Abdominal neoplasm [Recovering/Resolving]
  - Rib fracture [Recovered/Resolved]
  - Head injury [Recovered/Resolved]
  - Fall [Recovered/Resolved]

NARRATIVE: CASE EVENT DATE: 20180201
